FAERS Safety Report 4473381-0 (Version None)
Quarter: 2004Q4

REPORT INFORMATION
  Report Type: 
  Country: None (occurrence: None)
  Receive Date: 20041008
  Receipt Date: 20040929
  Transmission Date: 20050328
  Serious: Yes (Disabling)
  Sender: FDA-Public Use
  Company Number: 6010791

PATIENT
  Age: 81 Year
  Sex: Female

DRUGS (2)
  1. DETENSIEL (TABLETS) (BISOPROLOL) [Suspect]
     Indication: ARRHYTHMIA
     Dosage: 10,000 MG (10 MG, 1 IN 1 D) ORAL
     Route: 048
  2. CORTANCYL (PREDNISONE) [Concomitant]

REACTIONS (3)
  - DYSPNOEA [None]
  - PULMONARY FIBROSIS [None]
  - THERAPY NON-RESPONDER [None]
